FAERS Safety Report 7938989-6 (Version None)
Quarter: 2011Q4

REPORT INFORMATION
  Report Type: 
  Country: None (occurrence: None)
  Receive Date: 20111124
  Receipt Date: 20111122
  Transmission Date: 20120403
  Serious: No
  Sender: FDA-Public Use
  Company Number: US-PFIZER INC-2011286039

PATIENT
  Sex: Female
  Weight: 118 kg

DRUGS (2)
  1. HYDROCODONE [Concomitant]
     Indication: PAIN
     Dosage: UNK
  2. LYRICA [Suspect]
     Indication: BACK INJURY
     Dosage: 75 MG, 2X/DAY
     Route: 048
     Dates: start: 20110701, end: 20111121

REACTIONS (1)
  - ALOPECIA [None]
